FAERS Safety Report 5060665-0 (Version None)
Quarter: 2006Q2

REPORT INFORMATION
  Report Type: 
  Country: None (occurrence: None)
  Receive Date: 20060630
  Receipt Date: 20051101
  Transmission Date: 20061013
  Serious: Yes (Hospitalization)
  Sender: FDA-Public Use
  Company Number: USA0511112413

PATIENT
  Age: 55 Year
  Sex: Female

DRUGS (6)
  1. HUMALOG [Suspect]
     Dosage: SUBCUTANEOUS
     Route: 058
     Dates: start: 19980101
  2. LISINOPRIL [Concomitant]
  3. KEPRA (LEVETIRACETAM) [Concomitant]
  4. VICODIN [Concomitant]
  5. SKELAXIN [Concomitant]
  6. MOTRIN [Concomitant]

REACTIONS (2)
  - DRUG INEFFECTIVE [None]
  - HYPERGLYCAEMIA [None]
